FAERS Safety Report 10457023 (Version 6)
Quarter: 2016Q2

REPORT INFORMATION
  Report Type: Spontaneous
  Country: US (occurrence: US)
  Receive Date: 20140916
  Receipt Date: 20160628
  Transmission Date: 20160815
  Serious: Yes (Other)
  Sender: FDA-Public Use
  Company Number: US-009507513-1409USA006145

PATIENT
  Sex: Male

DRUGS (1)
  1. PROPECIA [Suspect]
     Active Substance: FINASTERIDE
     Indication: ALOPECIA
     Dosage: 1 MG, QD
     Route: 048
     Dates: start: 19980330, end: 2012

REACTIONS (11)
  - Sexual dysfunction [Not Recovered/Not Resolved]
  - Erectile dysfunction [Not Recovered/Not Resolved]
  - Benign prostatic hyperplasia [Unknown]
  - Prostatitis [Unknown]
  - Psychosexual disorder [Unknown]
  - Hypertension [Unknown]
  - Anxiety [Unknown]
  - Ulcer [Unknown]
  - Arteriosclerosis [Unknown]
  - Diabetes mellitus [Unknown]
  - Hypogonadism [Unknown]

NARRATIVE: CASE EVENT DATE: 1999
